FAERS Safety Report 7071629-X (Version None)
Quarter: 2010Q4

REPORT INFORMATION
  Report Type: 
  Country: None (occurrence: None)
  Receive Date: 20101029
  Receipt Date: 20091014
  Transmission Date: 20110411
  Serious: No
  Sender: FDA-Public Use
  Company Number: A0809757A

PATIENT
  Age: 82 Year
  Sex: Female

DRUGS (11)
  1. ADVAIR DISKUS 100/50 [Suspect]
     Indication: PNEUMONIA BACTERIAL
     Dosage: 1PUFF TWICE PER DAY
     Route: 055
     Dates: start: 20090912
  2. LISINOPRIL [Concomitant]
  3. XANAX [Concomitant]
  4. AMBIEN [Concomitant]
  5. LIPITOR [Concomitant]
  6. DEXAMETHASONE [Concomitant]
  7. ASPIRIN [Concomitant]
  8. MULTI-VITAMIN [Concomitant]
  9. ASCORBIC ACID [Concomitant]
  10. VITAMIN D [Concomitant]
  11. CALCIUM [Concomitant]

REACTIONS (2)
  - DIZZINESS [None]
  - FEELING ABNORMAL [None]
